FAERS Safety Report 7360335-X (Version None)
Quarter: 2011Q1

REPORT INFORMATION
  Report Type: 
  Country: None (occurrence: None)
  Receive Date: 20110318
  Receipt Date: 20100916
  Transmission Date: 20110831
  Serious: Yes (Other)
  Sender: FDA-Public Use
  Company Number: US-BAYER-201014027NA

PATIENT
  Sex: Female
  Weight: 59.864 kg

DRUGS (11)
  1. FLONASE [Concomitant]
     Dosage: 0.05 MG, UNK
  2. YASMIN [Suspect]
     Indication: DYSMENORRHOEA
  3. CIPRO [Concomitant]
     Indication: URINARY TRACT INFECTION
     Dosage: UNK
     Dates: start: 20090811
  4. NSAID'S [Concomitant]
  5. YAZ [Suspect]
     Indication: DYSMENORRHOEA
     Dosage: UNK UNK, QD
     Dates: start: 20071207, end: 20090801
  6. LEXAPRO [Concomitant]
     Indication: DEPRESSION
     Dosage: UNK
     Dates: start: 20091101
  7. ZANTAC [Concomitant]
     Indication: DYSPEPSIA
     Dosage: 150 MG, BID
     Dates: start: 20080901
  8. YAZ [Suspect]
     Indication: PREMENSTRUAL SYNDROME
  9. OCELLA [Suspect]
     Dosage: UNK
     Dates: start: 20071207, end: 20090801
  10. YASMIN [Suspect]
     Indication: PREMENSTRUAL SYNDROME
     Dosage: UNK UNK, QD
     Route: 048
     Dates: start: 20071207, end: 20090901
  11. ZYRTEC [Concomitant]
     Indication: MULTIPLE ALLERGIES
     Dosage: 10 MG, QD
     Route: 048
     Dates: start: 20080901

REACTIONS (8)
  - GALLBLADDER CHOLESTEROLOSIS [None]
  - DIARRHOEA [None]
  - BILIARY DYSKINESIA [None]
  - CHOLECYSTECTOMY [None]
  - BACK PAIN [None]
  - ABDOMINAL PAIN [None]
  - NAUSEA [None]
  - CHOLECYSTITIS CHRONIC [None]
